FAERS Safety Report 24429296 (Version 3)
Quarter: 2024Q4

REPORT INFORMATION
  Report Type: Spontaneous
  Country: CL (occurrence: CL)
  Receive Date: 20241011
  Receipt Date: 20241202
  Transmission Date: 20250114
  Serious: No
  Sender: PFIZER
  Company Number: CL-PFIZER INC-PV202400129930

PATIENT
  Age: 10 Year
  Sex: Female

DRUGS (1)
  1. GENOTROPIN [Suspect]
     Active Substance: SOMATROPIN
     Dosage: UNK

REACTIONS (5)
  - Device mechanical issue [Unknown]
  - Device deployment issue [Unknown]
  - Device breakage [Unknown]
  - Wrong technique in device usage process [Unknown]
  - Poor quality device used [Unknown]
